FAERS Safety Report 4358897-X (Version None)
Quarter: 2004Q2

REPORT INFORMATION
  Report Type: 
  Country: None (occurrence: None)
  Receive Date: 20040517
  Receipt Date: 20030212
  Transmission Date: 20050107
  Serious: Yes (Other)
  Sender: FDA-Public Use
  Company Number: PHEH2003US01503

PATIENT
  Age: 65 Year
  Sex: Female

DRUGS (11)
  1. AREDIA [Suspect]
     Indication: METASTASES TO BONE
     Dosage: 90 MG, QMO
     Dates: start: 20011228, end: 20030924
  2. AXID [Concomitant]
     Dosage: UNK/UNK
  3. ALDACTONE [Concomitant]
     Dosage: UNK/UNK
  4. ANASTROZOLE [Concomitant]
     Dosage: 1 MG, QD
  5. PAXIL [Concomitant]
     Indication: DEPRESSION
     Dosage: 20 MG, QD
     Dates: start: 20020326
  6. HYDROMORPHONE [Concomitant]
     Dosage: 2 MG, PRN
  7. FUROSEMIDE [Concomitant]
     Dosage: 20 MG, QD
  8. PREVACID [Concomitant]
     Dosage: 30 MG, QD
     Dates: end: 20020125
  9. AMBIEN [Concomitant]
     Dosage: 10 MG, QHS
     Dates: start: 20020326
  10. ADRIAMYCIN PFS [Concomitant]
     Indication: BREAST CANCER
     Dates: start: 20010401
  11. CYTOXAN [Concomitant]
     Indication: BREAST CANCER
     Dates: start: 20010401

REACTIONS (14)
  - BONE DEBRIDEMENT [None]
  - CHRONIC SINUSITIS [None]
  - FISTULA [None]
  - HYPERBARIC OXYGEN THERAPY [None]
  - IMPAIRED HEALING [None]
  - LASER THERAPY [None]
  - LIP AND/OR ORAL CAVITY CANCER [None]
  - OSTEOMYELITIS [None]
  - OSTEONECROSIS [None]
  - PRIMARY SEQUESTRUM [None]
  - SEQUESTRECTOMY [None]
  - TONGUE DYSPLASIA [None]
  - TONGUE NEOPLASM MALIGNANT STAGE UNSPECIFIED [None]
  - TOOTH EXTRACTION [None]
